FAERS Safety Report 4310937-X (Version None)
Quarter: 2004Q1

REPORT INFORMATION
  Report Type: 
  Country: None (occurrence: None)
  Receive Date: 20040302
  Receipt Date: 20040302
  Transmission Date: 20041129
  Serious: Yes (Other)
  Sender: FDA-Public Use
  Company Number: None

PATIENT
  Age: 50 Year
  Sex: Male
  Weight: 74.8435 kg

DRUGS (1)
  1. ZICAM LIQUID NASAL GEL SPRAY [Suspect]
     Indication: NASOPHARYNGITIS
     Dosage: 1 SPRAY EVERY 4 HOURS
     Dates: start: 20040206, end: 20040209

REACTIONS (3)
  - NASAL DISCOMFORT [None]
  - PAIN [None]
  - PAROSMIA [None]
